FAERS Safety Report 21568232 (Version 1)
Quarter: 2022Q4

REPORT INFORMATION
  Report Type: Spontaneous
  Country: US (occurrence: US)
  Receive Date: 20221108
  Receipt Date: 20221108
  Transmission Date: 20230113
  Serious: No
  Sender: FDA-Public Use
  Company Number: US-MYLANLABS-2022M1118653

PATIENT
  Sex: Male

DRUGS (1)
  1. WIXELA INHUB [Suspect]
     Active Substance: FLUTICASONE PROPIONATE\SALMETEROL XINAFOATE
     Indication: Product used for unknown indication
     Dosage: 120 MICROGRAM, BID (STARTED TAKING WIXELA THREE YEARS)
     Route: 065

REACTIONS (5)
  - Affective disorder [Unknown]
  - Agitation [Unknown]
  - Headache [Unknown]
  - Cough [Unknown]
  - Wheezing [Unknown]
